FAERS Safety Report 21639599 (Version 1)
Quarter: 2022Q4

REPORT INFORMATION
  Report Type: Spontaneous
  Country: US (occurrence: US)
  Receive Date: 20221124
  Receipt Date: 20221124
  Transmission Date: 20230112
  Serious: No
  Sender: FDA-Public Use
  Company Number: US-BRISTOL-MYERS SQUIBB COMPANY-2022-142749

PATIENT
  Age: 92 Year
  Weight: 60.78 kg

DRUGS (1)
  1. REVLIMID [Suspect]
     Active Substance: LENALIDOMIDE
     Indication: Myelodysplastic syndrome
     Dosage: DAILY FOR 20DAYS
     Route: 048

REACTIONS (4)
  - Diarrhoea [Unknown]
  - Haematuria [Unknown]
  - Urinary tract infection [Unknown]
  - Off label use [Unknown]
